FAERS Safety Report 7381945-X (Version None)
Quarter: 2011Q1

REPORT INFORMATION
  Report Type: 
  Country: None (occurrence: None)
  Receive Date: 20110329
  Receipt Date: 20110322
  Transmission Date: 20110831
  Serious: Yes (Other)
  Sender: FDA-Public Use
  Company Number: US-B.I. PHARMACEUTICALS,INC./RIDGEFIELD-2011-BP-08898BP

PATIENT
  Sex: Male

DRUGS (16)
  1. FUROSEMIDE [Concomitant]
     Dosage: 80 MG
     Route: 048
  2. POTASSIUM [Concomitant]
  3. FLOMAX [Concomitant]
  4. LIPITOR [Concomitant]
  5. CENTRUM VITAMINS [Concomitant]
  6. VITAMIN B [Concomitant]
  7. ATACAND [Concomitant]
  8. COREG [Concomitant]
  9. ASPIRIN [Concomitant]
  10. PRILOSEC [Concomitant]
  11. PRADAXA [Suspect]
     Indication: ATRIAL FIBRILLATION
     Dosage: 300 MG
     Route: 048
     Dates: start: 20101101
  12. DIGOXIN [Concomitant]
  13. ZETIA [Concomitant]
  14. MILK THISTLE [Concomitant]
  15. ASCORBIC ACID [Concomitant]
  16. VITAMIN D [Concomitant]

REACTIONS (5)
  - DIARRHOEA [None]
  - MALIGNANT MELANOMA [None]
  - FREQUENT BOWEL MOVEMENTS [None]
  - RECTAL HAEMORRHAGE [None]
  - DYSPEPSIA [None]
